FAERS Safety Report 11184245 (Version 1)
Quarter: 2015Q2

REPORT INFORMATION
  Report Type: Spontaneous
  Country: PT (occurrence: None)
  Receive Date: 20150610
  Receipt Date: 20150610
  Transmission Date: 20150821
  Serious: Yes (Life-Threatening, Hospitalization)
  Sender: FDA-Public Use
  Company Number: FK201502521

PATIENT
  Age: 73 Year
  Sex: Male

DRUGS (6)
  1. CLORENO DE SODIO (SODIUM CHLORIDE) [Concomitant]
  2. PROPOFOL. [Suspect]
     Active Substance: PROPOFOL
     Indication: GENERAL ANAESTHESIA
     Route: 042
     Dates: start: 20150506, end: 20150506
  3. MIDAZOLAM [Concomitant]
     Active Substance: MIDAZOLAM\MIDAZOLAM HYDROCHLORIDE
  4. NITROGLICERINA [Suspect]
     Active Substance: NITROGLYCERIN
     Indication: SURGERY
     Route: 042
     Dates: start: 20150506, end: 20150506
  5. FENTANYL (FENTANYL) [Concomitant]
     Active Substance: FENTANYL
  6. BROMETO DE PANCURONIO (PANCURONIUM BROMIDE) [Concomitant]

REACTIONS (4)
  - Hypotension [None]
  - Product quality issue [None]
  - Drug interaction [None]
  - Drug effect decreased [None]

NARRATIVE: CASE EVENT DATE: 20150506
